FAERS Safety Report 7116815-5 (Version None)
Quarter: 2010Q4

REPORT INFORMATION
  Report Type: 
  Country: None (occurrence: None)
  Receive Date: 20101122
  Receipt Date: 20101110
  Transmission Date: 20110411
  Serious: Yes (Other)
  Sender: FDA-Public Use
  Company Number: US-PFIZER INC-US-WYE-H18247610

PATIENT
  Sex: Female

DRUGS (1)
  1. PROTONIX [Suspect]
     Dosage: UNSPECIFIED

REACTIONS (3)
  - COELIAC DISEASE [None]
  - DERMATITIS HERPETIFORMIS [None]
  - DIARRHOEA [None]
